FAERS Safety Report 23933707 (Version 4)
Quarter: 2024Q3

REPORT INFORMATION
  Report Type: Spontaneous
  Country: JP (occurrence: JP)
  Receive Date: 20240603
  Receipt Date: 20240716
  Transmission Date: 20241016
  Serious: Yes (Death, Disabling)
  Sender: DAIICHI
  Company Number: JP-DSJP-DSJ-2024-124276

PATIENT
  Age: 88 Year
  Sex: Male

DRUGS (1)
  1. EDOXABAN TOSYLATE [Suspect]
     Active Substance: EDOXABAN TOSYLATE
     Indication: Product used for unknown indication
     Dosage: 15 MG, QD
     Route: 048
     Dates: start: 20230801

REACTIONS (2)
  - Infection [Fatal]
  - Embolic stroke [Recovered/Resolved with Sequelae]

NARRATIVE: CASE EVENT DATE: 20231201
